FAERS Safety Report 6376380-7 (Version None)
Quarter: 2009Q3

REPORT INFORMATION
  Report Type: 
  Country: None (occurrence: None)
  Receive Date: 20090925
  Receipt Date: 20090916
  Transmission Date: 20100115
  Serious: Yes (Other)
  Sender: FDA-Public Use
  Company Number: US-JNJFOC-20090905561

PATIENT
  Sex: Female
  Weight: 159.67 kg

DRUGS (2)
  1. REMICADE [Suspect]
     Route: 042
     Dates: start: 20090122, end: 20090528
  2. REMICADE [Suspect]
     Indication: PSORIATIC ARTHROPATHY
     Dosage: DOSE: 8 VIALS
     Route: 042
     Dates: start: 20090122, end: 20090528

REACTIONS (2)
  - SUTURE RELATED COMPLICATION [None]
  - TENDON RUPTURE [None]
